FAERS Safety Report 9542420 (Version 11)
Quarter: 2014Q2

REPORT INFORMATION
  Report Type: Spontaneous
  Country: US (occurrence: US)
  Receive Date: 20130923
  Receipt Date: 20140616
  Transmission Date: 20141212
  Serious: Yes (Hospitalization, Other)
  Sender: FDA-Public Use
  Company Number: US-PFIZER INC-2013269695

PATIENT
  Age: 45 Year
  Sex: Female
  Weight: 89.81 kg

DRUGS (12)
  1. IBUPROFEN [Suspect]
     Dosage: 1600 MG, 1X/DAY
     Route: 065
     Dates: start: 20110404
  2. EXTRA STRENGTH TYLENOL [Suspect]
     Indication: PAIN
     Dosage: 2-4 TABLET EVERY 4 HOURS
     Route: 048
     Dates: start: 20110330, end: 20110404
  3. EXTRA STRENGTH TYLENOL [Suspect]
     Indication: PYREXIA
  4. TYLENOL COLD [Suspect]
     Indication: NASOPHARYNGITIS
     Dosage: 2 TO4 TABLETS EVERY 4 HOURS OF INTERVAL
     Route: 065
     Dates: start: 20110330, end: 20110404
  5. TYLENOL COLD [Suspect]
     Indication: PYREXIA
  6. LORCET [Suspect]
     Indication: BACK PAIN
     Dosage: 10/650 UNK, UNK
     Route: 048
     Dates: start: 2000
  7. VICODIN [Suspect]
     Indication: BACK PAIN
     Dosage: THREE TIMES A DAY
  8. VICODIN [Suspect]
     Indication: PAIN
  9. ZYRTEC [Concomitant]
     Indication: MULTIPLE ALLERGIES
     Dosage: UNK
     Route: 065
     Dates: start: 2000
  10. GABAPENTIN [Concomitant]
     Indication: BACK PAIN
     Dosage: UNK
     Route: 065
     Dates: start: 2000
  11. CARISOPRODOL [Concomitant]
     Indication: BACK PAIN
     Dosage: UNK
     Route: 065
     Dates: start: 2000
  12. CARISOPRODOL [Concomitant]
     Indication: MUSCLE RELAXANT THERAPY

REACTIONS (12)
  - Overdose [Unknown]
  - Liver injury [Unknown]
  - Acute hepatic failure [Recovered/Resolved]
  - Hepatocellular injury [Unknown]
  - Depression [Unknown]
  - Abdominal pain [Unknown]
  - Nausea [Unknown]
  - Vomiting [Unknown]
  - Fatigue [Unknown]
  - Anxiety [Unknown]
  - Dehydration [Unknown]
  - Pyrexia [Unknown]
